FAERS Safety Report 16581926 (Version 1)
Quarter: 2019Q3

REPORT INFORMATION
  Report Type: Spontaneous
  Country: IL (occurrence: IL)
  Receive Date: 20190717
  Receipt Date: 20190717
  Transmission Date: 20191004
  Serious: Yes (Other)
  Sender: FDA-Public Use
  Company Number: IL-BAXTER-2019BAX013788

PATIENT
  Sex: Male

DRUGS (9)
  1. GLUCOSE 5% INTRAVENOUS INFUSION BP [Suspect]
     Active Substance: DEXTROSE
     Indication: MEDICATION DILUTION
     Dosage: IMPORTED FROM THE UK; COMPOUNDED WITH OXALIPLATIN
     Route: 065
  2. GLUCOSE 5% INTRAVENOUS INFUSION BP [Suspect]
     Active Substance: DEXTROSE
     Dosage: IMPORTED FROM THE UK; COMPOUNDED WITH OXALIPLATIN (THERAPY RENEWED)
     Route: 065
  3. 5-FLUOROURACIL [Suspect]
     Active Substance: FLUOROURACIL
     Dosage: AS PART OF FOLFOX THERAPY (SECOND TIME)
     Route: 065
  4. 5-FLUOROURACIL [Suspect]
     Active Substance: FLUOROURACIL
     Indication: PRODUCT USED FOR UNKNOWN INDICATION
     Dosage: AS PART OF FOLFOX THERAPY (FIRST TIME)
     Route: 065
  5. OXALIPLATIN MEDAC [Suspect]
     Active Substance: OXALIPLATIN
     Indication: PRODUCT USED FOR UNKNOWN INDICATION
     Dosage: AS PART OF FOLFOX THERAPY (FIRST TIME)
     Route: 065
  6. OXALIPLATIN MEDAC [Suspect]
     Active Substance: OXALIPLATIN
     Dosage: AS PART OF FOLFOX THERAPY (SECOND TIME); OXALIPLATIN 50MG PWD AND 100MG PWD IN GLUCOSE 5%
     Route: 065
  7. OXALIPLATIN MEDAC [Suspect]
     Active Substance: OXALIPLATIN
     Dosage: OXALIPLATIN 50MG PWD AND 100MG PWD IN GLUCOSE 5% (THERAPY RENEWED)
     Route: 065
  8. LEUCOVORIN. [Suspect]
     Active Substance: LEUCOVORIN
     Dosage: AS PART OF FOLFOX THERAPY (SECOND TIME)
     Route: 065
  9. LEUCOVORIN. [Suspect]
     Active Substance: LEUCOVORIN
     Indication: PRODUCT USED FOR UNKNOWN INDICATION
     Dosage: AS PART OF FOLFOX THERAPY (FIRST TIME)
     Route: 065

REACTIONS (6)
  - Rash [Unknown]
  - Pruritus [Unknown]
  - Rash generalised [Unknown]
  - Erythema [Unknown]
  - Dyspnoea [Recovered/Resolved]
  - Abdominal pain [Recovered/Resolved]
